FAERS Safety Report 6898065-0 (Version None)
Quarter: 2010Q3

REPORT INFORMATION
  Report Type: 
  Country: None (occurrence: None)
  Receive Date: 20100802
  Receipt Date: 20070825
  Transmission Date: 20110219
  Serious: Yes (Other)
  Sender: FDA-Public Use
  Company Number: US-PFIZER INC-2007064713

PATIENT
  Sex: Female
  Weight: 136.1 kg

DRUGS (6)
  1. LYRICA [Suspect]
     Indication: NEUROPATHY PERIPHERAL
     Route: 048
     Dates: start: 20070728, end: 20070729
  2. NEURONTIN [Suspect]
  3. SILVADENE [Concomitant]
  4. THYROID TAB [Concomitant]
  5. LUNESTA [Concomitant]
     Indication: NEUROPATHY PERIPHERAL
     Dates: start: 20070728, end: 20070729
  6. VICOPROFEN [Concomitant]

REACTIONS (15)
  - ASTHENIA [None]
  - ATAXIA [None]
  - DIZZINESS [None]
  - FALL [None]
  - FEELING ABNORMAL [None]
  - GAIT DISTURBANCE [None]
  - HEAD INJURY [None]
  - MALAISE [None]
  - NAUSEA [None]
  - OEDEMA PERIPHERAL [None]
  - PRURITUS [None]
  - SOFT TISSUE INJURY [None]
  - SOMNOLENCE [None]
  - VERTIGO [None]
  - WEIGHT INCREASED [None]
